FAERS Safety Report 4444051-X (Version None)
Quarter: 2004Q3

REPORT INFORMATION
  Report Type: 
  Country: None (occurrence: None)
  Receive Date: 20040729
  Receipt Date: 20040413
  Transmission Date: 20050211
  Serious: Yes (Other)
  Sender: FDA-Public Use
  Company Number: US-JNJFOC-20040104083

PATIENT
  Age: 55 Year
  Sex: Female

DRUGS (5)
  1. RISPERDAL [Suspect]
     Indication: SCHIZOPHRENIA
     Dosage: 2 MG, 1 IN 1 DAY, ORAL
     Route: 048
     Dates: start: 19970401
  2. DOXEPIN (DOXEPIN) [Concomitant]
  3. SYNTHROID [Concomitant]
  4. MEVACOR [Concomitant]
  5. METFORMIN HCL [Concomitant]

REACTIONS (2)
  - DIABETES MELLITUS [None]
  - MUSCLE CRAMP [None]
